FAERS Safety Report 7225877-6 (Version None)
Quarter: 2011Q1

REPORT INFORMATION
  Report Type: 
  Country: None (occurrence: None)
  Receive Date: 20110107
  Receipt Date: 20110107
  Transmission Date: 20110831
  Serious: Yes (Other)
  Sender: FDA-Public Use
  Company Number: None

PATIENT
  Age: 32 Year
  Sex: Male
  Weight: 70.3075 kg

DRUGS (1)
  1. OXYCODONE 5MG [Suspect]
     Indication: DRUG WITHDRAWAL SYNDROME

REACTIONS (7)
  - HOT FLUSH [None]
  - HYPOAESTHESIA [None]
  - PAIN [None]
  - PARAESTHESIA [None]
  - FEELING COLD [None]
  - PRURITUS [None]
  - PRODUCT SUBSTITUTION ISSUE [None]
